FAERS Safety Report 5191539-2 (Version None)
Quarter: 2006Q4

REPORT INFORMATION
  Report Type: 
  Country: None (occurrence: None)
  Receive Date: 20061219
  Receipt Date: 20061207
  Transmission Date: 20070319
  Serious: Yes (Other)
  Sender: FDA-Public Use
  Company Number: 2006118614

PATIENT
  Age: 74 Year
  Sex: Female
  Weight: 124.2856 kg

DRUGS (9)
  1. CADUET [Suspect]
     Indication: DYSLIPIDAEMIA
     Dosage: 5/10 (1 IN 1 D)
     Dates: start: 20060304, end: 20060318
  2. HUMULIN 70/30 [Concomitant]
  3. METFORMIN HCL [Concomitant]
  4. COZAAR [Concomitant]
  5. TRIAMTERENE AND HYDROCHLOROTHIAZIDE [Concomitant]
  6. DITROPAN [Concomitant]
  7. LEVOXYL [Concomitant]
  8. ALEVE [Concomitant]
  9. CHRONDROITI/GLUCOSAMINE [Concomitant]

REACTIONS (6)
  - ARTHRALGIA [None]
  - ASTHENIA [None]
  - BACK PAIN [None]
  - GAIT DISTURBANCE [None]
  - MYALGIA [None]
  - PAIN IN EXTREMITY [None]
